FAERS Safety Report 7154631-9 (Version None)
Quarter: 2010Q4

REPORT INFORMATION
  Report Type: 
  Country: None (occurrence: None)
  Receive Date: 20101214
  Receipt Date: 20091104
  Transmission Date: 20110411
  Serious: No
  Sender: FDA-Public Use
  Company Number: US-AMGEN-KDL372995

PATIENT

DRUGS (5)
  1. ENBREL [Suspect]
     Indication: PSORIATIC ARTHROPATHY
  2. ADALIMUMAB [Suspect]
     Indication: PSORIATIC ARTHROPATHY
     Dosage: 40 MG, Q2WK
     Route: 058
     Dates: start: 20091013
  3. METHOTREXATE [Concomitant]
     Dosage: 7.5 MG, QWK
     Route: 048
  4. LISINOPRIL [Concomitant]
     Dosage: UNK UNK, QD
     Route: 048
  5. PRAVASTATIN [Concomitant]
     Dosage: 20 MG, QD
     Route: 048

REACTIONS (2)
  - INJECTION SITE PAIN [None]
  - THERAPEUTIC RESPONSE DECREASED [None]
